FAERS Safety Report 5664416-8 (Version None)
Quarter: 2008Q1

REPORT INFORMATION
  Report Type: 
  Country: None (occurrence: None)
  Receive Date: 20080314
  Receipt Date: 20080301
  Transmission Date: 20080703
  Serious: Yes (Hospitalization)
  Sender: FDA-Public Use
  Company Number: US-AMGEN-US267697

PATIENT
  Sex: Female

DRUGS (4)
  1. SENSIPAR [Suspect]
     Indication: PARATHYROID TUMOUR MALIGNANT
  2. DEXAMETHASONE TAB [Concomitant]
  3. LASIX [Concomitant]
  4. SALINE MIXTURE [Concomitant]

REACTIONS (4)
  - HYPERCALCAEMIA [None]
  - MENTAL STATUS CHANGES [None]
  - RESPIRATORY FAILURE [None]
  - SOMNOLENCE [None]
